FAERS Safety Report 5801213-4 (Version None)
Quarter: 2008Q3

REPORT INFORMATION
  Report Type: 
  Country: None (occurrence: None)
  Receive Date: 20080703
  Receipt Date: 20080703
  Transmission Date: 20090109
  Serious: Yes (Life-Threatening)
  Sender: FDA-Public Use
  Company Number: None

PATIENT
  Age: 47 Year
  Sex: Male
  Weight: 79.3795 kg

DRUGS (2)
  1. SEROQUEL [Suspect]
     Dosage: 650 MG EVERYDAY ORAL
     Route: 048
     Dates: start: 20070901
  2. HALDOL [Suspect]
     Dosage: 5 MG REFUSELS NEEDLE
     Dates: start: 20060101, end: 20070101

REACTIONS (3)
  - FATIGUE [None]
  - MYALGIA [None]
  - SOMNOLENCE [None]
